FAERS Safety Report 9285345 (Version 1)
Quarter: 2013Q2

REPORT INFORMATION
  Report Type: Spontaneous
  Country: GB (occurrence: GB)
  Receive Date: 20130513
  Receipt Date: 20130513
  Transmission Date: 20140414
  Serious: Yes (Hospitalization)
  Sender: FDA-Public Use
  Company Number: GB-ASTELLAS-2013EU004043

PATIENT
  Sex: Male

DRUGS (1)
  1. PROGRAF [Suspect]
     Dosage: UNK
     Route: 042

REACTIONS (4)
  - Renal disorder [Unknown]
  - Pancreatic disorder [Unknown]
  - Vomiting [Unknown]
  - Dysphagia [Unknown]
